FAERS Safety Report 16388859 (Version 1)
Quarter: 2019Q2

REPORT INFORMATION
  Report Type: Spontaneous
  Country: KR (occurrence: KR)
  Receive Date: 20190604
  Receipt Date: 20190604
  Transmission Date: 20190711
  Serious: Yes (Other)
  Sender: FDA-Public Use
  Company Number: KR-JUBILANT CADISTA PHARMACEUTICALS-2019JUB00208

PATIENT
  Age: 78 Year
  Sex: Female

DRUGS (1)
  1. DONEPEZIL. [Suspect]
     Active Substance: DONEPEZIL
     Indication: DEMENTIA ALZHEIMER^S TYPE
     Dosage: 23 MG, 1X/DAY
     Route: 065

REACTIONS (3)
  - Vomiting [Unknown]
  - Nausea [Unknown]
  - Chills [Unknown]
